FAERS Safety Report 7273280-5 (Version None)
Quarter: 2011Q1

REPORT INFORMATION
  Report Type: 
  Country: None (occurrence: None)
  Receive Date: 20110203
  Receipt Date: 20101215
  Transmission Date: 20110831
  Serious: No
  Sender: FDA-Public Use
  Company Number: US-ABBOTT-10P-163-0692226-00

PATIENT
  Age: 58 Year
  Sex: Female
  Weight: 53.118 kg

DRUGS (5)
  1. SYNTHROID [Suspect]
     Route: 048
  2. SYNTHROID [Suspect]
     Dosage: UNKNOWN DOSE, STARTED 9 YEARS AGO
     Route: 048
  3. SYNTHROID [Suspect]
     Route: 048
  4. SYNTHROID [Suspect]
     Indication: HYPOTHYROIDISM
  5. SEVERAL CHINESE HERBAL MEDICATIONS [Concomitant]
     Indication: HEPATITIS C

REACTIONS (9)
  - NERVOUSNESS [None]
  - HEADACHE [None]
  - ANXIETY [None]
  - HYPERHIDROSIS [None]
  - INSOMNIA [None]
  - NAUSEA [None]
  - HEART RATE INCREASED [None]
  - BACK PAIN [None]
  - BLOOD PRESSURE INCREASED [None]
